FAERS Safety Report 5238713-4 (Version None)
Quarter: 2007Q1

REPORT INFORMATION
  Report Type: 
  Country: None (occurrence: None)
  Receive Date: 20070215
  Receipt Date: 20070209
  Transmission Date: 20070707
  Serious: Yes (Hospitalization)
  Sender: FDA-Public Use
  Company Number: US-ROXANE LABORATORIES, INC-2007-BP-02220RO

PATIENT
  Age: 62 Year
  Sex: Male

DRUGS (10)
  1. DEXAMETHASONE [Suspect]
     Indication: PROPHYLAXIS
     Route: 048
     Dates: start: 20070112, end: 20070114
  2. CISPLATIN [Suspect]
     Indication: METASTATIC GASTRIC CANCER
     Dosage: 178 MG X 1 DOSE
     Route: 042
     Dates: start: 20070111, end: 20070111
  3. FLUOROURACIL [Suspect]
     Indication: METASTATIC GASTRIC CANCER
     Dosage: 1780 MG/DAY X 5 DAYS
     Route: 042
     Dates: start: 20070111, end: 20070115
  4. DEXAMETHASONE [Suspect]
     Indication: PROPHYLAXIS
     Dosage: 10 MG X 1 DOSE
     Route: 042
     Dates: start: 20070111, end: 20070111
  5. EMEND [Concomitant]
     Indication: PREMEDICATION
     Route: 048
  6. LORAZEPAM [Concomitant]
     Indication: PREMEDICATION
     Route: 042
  7. ONDANSETRON [Concomitant]
     Indication: PREMEDICATION
     Route: 042
  8. COMPAZINE [Concomitant]
     Indication: NAUSEA
     Route: 048
     Dates: start: 20070111
  9. ZOFRAN [Concomitant]
     Indication: NAUSEA
     Route: 048
     Dates: start: 20070111
  10. HYDROCODONE [Concomitant]
     Indication: PAIN
     Dosage: 5/500 MG/DOSE, PRN
     Route: 048
     Dates: start: 20070102

REACTIONS (12)
  - ALANINE AMINOTRANSFERASE INCREASED [None]
  - ASTHENIA [None]
  - BLOOD ALKALINE PHOSPHATASE INCREASED [None]
  - BLOOD BILIRUBIN INCREASED [None]
  - BLOOD CHLORIDE DECREASED [None]
  - BLOOD POTASSIUM INCREASED [None]
  - CARBON DIOXIDE DECREASED [None]
  - HYPERBILIRUBINAEMIA [None]
  - HYPERGLYCAEMIA [None]
  - HYPERTRIGLYCERIDAEMIA [None]
  - METABOLIC ACIDOSIS [None]
  - RENAL FAILURE [None]
